FAERS Safety Report 6645327-8 (Version None)
Quarter: 2010Q1

REPORT INFORMATION
  Report Type: 
  Country: None (occurrence: None)
  Receive Date: 20100322
  Receipt Date: 20100309
  Transmission Date: 20100710
  Serious: Yes (Hospitalization)
  Sender: FDA-Public Use
  Company Number: JP-AMGEN-US362378

PATIENT
  Sex: Female
  Weight: 37 kg

DRUGS (21)
  1. ENBREL [Suspect]
     Indication: RHEUMATOID ARTHRITIS
     Route: 058
     Dates: start: 20090612, end: 20090701
  2. ENBREL [Suspect]
     Dates: start: 20090722, end: 20090722
  3. ENBREL [Suspect]
     Route: 058
     Dates: start: 20090824, end: 20090824
  4. LOSARTAN POTASSIUM AND HYDROCHLOROTHIAZIDE [Concomitant]
     Indication: HYPERTENSION
     Route: 048
     Dates: end: 20090709
  5. NU-LOTAN [Concomitant]
     Indication: HYPERTENSION
     Route: 048
     Dates: end: 20090701
  6. NU-LOTAN [Concomitant]
     Route: 048
     Dates: start: 20090710, end: 20090723
  7. BENET [Concomitant]
     Indication: OSTEOPOROSIS
     Route: 048
     Dates: end: 20090721
  8. EPOETIN ALFA [Concomitant]
     Indication: ANAEMIA
     Route: 058
     Dates: start: 20090526
  9. LANSOPRAZOLE [Concomitant]
     Indication: GASTRIC ULCER
     Route: 048
     Dates: start: 20090612, end: 20090723
  10. LANSOPRAZOLE [Concomitant]
     Route: 048
     Dates: start: 20090724, end: 20090730
  11. ISCOTIN [Concomitant]
     Indication: ANTIBIOTIC PROPHYLAXIS
     Route: 048
     Dates: start: 20090612, end: 20090618
  12. ISCOTIN [Concomitant]
     Route: 048
     Dates: start: 20090619, end: 20090625
  13. ISCOTIN [Concomitant]
     Route: 048
     Dates: start: 20090626, end: 20090709
  14. PYRIDOXAL PHOSPHATE [Concomitant]
     Route: 048
     Dates: start: 20090612, end: 20090618
  15. PYRIDOXAL PHOSPHATE [Concomitant]
     Route: 048
     Dates: start: 20090619, end: 20090625
  16. PYRIDOXAL PHOSPHATE [Concomitant]
     Route: 048
     Dates: start: 20090626, end: 20090709
  17. CLARITH [Concomitant]
     Route: 048
  18. PREDNISOLONE [Concomitant]
     Indication: RHEUMATOID ARTHRITIS
     Route: 048
     Dates: end: 20090622
  19. PREDNISOLONE [Concomitant]
     Route: 048
     Dates: start: 20090623, end: 20090629
  20. PREDNISOLONE [Concomitant]
     Route: 048
     Dates: start: 20090630
  21. KALIMATE [Concomitant]
     Indication: RENAL FAILURE CHRONIC
     Route: 048
     Dates: end: 20090714

REACTIONS (4)
  - ANGIOEDEMA [None]
  - PRURITUS [None]
  - RASH [None]
  - RENAL TUBULAR ACIDOSIS [None]
